FAERS Safety Report 21033186 (Version 1)
Quarter: 2022Q3

REPORT INFORMATION
  Report Type: Spontaneous
  Country: FR (occurrence: FR)
  Receive Date: 20220701
  Receipt Date: 20220701
  Transmission Date: 20221026
  Serious: Yes (Other)
  Sender: FDA-Public Use
  Company Number: FR-AFSSAPS-CN20221103

PATIENT
  Age: 41 Year
  Sex: Female

DRUGS (8)
  1. GABAPENTIN [Suspect]
     Active Substance: GABAPENTIN
     Indication: Neuralgia
     Dosage: 800MG MORNING AND EVENING
     Route: 048
     Dates: start: 20220428, end: 20220501
  2. GABAPENTIN [Suspect]
     Active Substance: GABAPENTIN
     Dosage: 800MG MORNING, 800MG MIDDAY AND 1100MG EVENING
     Route: 048
     Dates: end: 20220401
  3. GABAPENTIN [Suspect]
     Active Substance: GABAPENTIN
     Dosage: 1100MG MORNING, 800MG NOON AND 1100MG EVENING
     Route: 048
     Dates: start: 20220401, end: 20220415
  4. GABAPENTIN [Suspect]
     Active Substance: GABAPENTIN
     Dosage: 1100MG MORNING, 800MG NOON AND 1100MG EVENING
     Route: 048
     Dates: start: 20220416, end: 20220427
  5. GABAPENTIN [Suspect]
     Active Substance: GABAPENTIN
     Dosage: 300MG MORNING AND EVENING
     Route: 048
     Dates: start: 20220501, end: 20220515
  6. AMITRIPTYLINE [Concomitant]
     Active Substance: AMITRIPTYLINE
     Indication: Neuralgia
     Dosage: 25MG IN THE EVENING
     Route: 048
  7. NEBIVOLOL [Concomitant]
     Active Substance: NEBIVOLOL
     Indication: Palpitations
     Dosage: 0.25 TABLETS OF 5MG/D
     Route: 065
  8. TECFIDERA [Concomitant]
     Active Substance: DIMETHYL FUMARATE
     Indication: Relapsing-remitting multiple sclerosis
     Dosage: 240MG MORNING AND EVENING
     Route: 048
     Dates: start: 20190505

REACTIONS (4)
  - Angioedema [Recovered/Resolved]
  - Nausea [Recovered/Resolved]
  - Tachycardia [Recovered/Resolved]
  - Withdrawal syndrome [Recovered/Resolved]

NARRATIVE: CASE EVENT DATE: 20220427
